FAERS Safety Report 5347385-X (Version None)
Quarter: 2007Q2

REPORT INFORMATION
  Report Type: 
  Country: None (occurrence: None)
  Receive Date: 20070507
  Receipt Date: 20060526
  Transmission Date: 20071010
  Serious: Yes (Other)
  Sender: FDA-Public Use
  Company Number: 27852

PATIENT
  Age: 43 Year
  Sex: Male

DRUGS (3)
  1. ADRIAMYCIN PFS [Suspect]
     Indication: SARCOMA
     Dosage: 20.7GM CONTINUOUS INFUSION FOR
     Dates: start: 20060430
  2. ADRIAMYCIN PFS [Suspect]
     Indication: SARCOMA
     Dosage: 20.7GM CONTINUOUS INFUSION FOR
     Dates: start: 20060526
  3. CYCLOPHOSPHAMIDE [Concomitant]

REACTIONS (1)
  - RASH [None]
